FAERS Safety Report 14285413 (Version 1)
Quarter: 2017Q4

REPORT INFORMATION
  Report Type: Spontaneous
  Country: US (occurrence: US)
  Receive Date: 20171214
  Receipt Date: 20171214
  Transmission Date: 20180321
  Serious: No
  Sender: FDA-Public Use
  Company Number: US-PFIZER INC-2017530804

PATIENT
  Age: 44 Year
  Sex: Female

DRUGS (4)
  1. LYRICA [Suspect]
     Active Substance: PREGABALIN
     Indication: FIBROMYALGIA
     Dosage: 225 MG, 2X/DAY (ONE 225MG CAPSULE IN THE MORNING AND THE EVENING)
     Route: 048
  2. RANITIDINE. [Concomitant]
     Active Substance: RANITIDINE
     Indication: DYSPEPSIA
     Dosage: TWO 150MG TABLETS IN THE EVENING
  3. LIPITOR [Concomitant]
     Active Substance: ATORVASTATIN CALCIUM
     Indication: BLOOD CHOLESTEROL ABNORMAL
     Dosage: 10MG TABLET BY MOUTH ONCE DAILY
     Route: 048
  4. CELEBREX [Concomitant]
     Active Substance: CELECOXIB
     Indication: FIBROMYALGIA
     Dosage: 100MG CAPSULE TWICE DAILY BY MOUTH
     Route: 048

REACTIONS (6)
  - Pyrexia [Recovered/Resolved]
  - Nausea [Recovered/Resolved]
  - Malaise [Recovered/Resolved]
  - Feeling of body temperature change [Recovered/Resolved]
  - Night sweats [Recovered/Resolved]
  - Feeling abnormal [Recovered/Resolved]
